FAERS Safety Report 5284806-5 (Version None)
Quarter: 2007Q2

REPORT INFORMATION
  Report Type: 
  Country: None (occurrence: None)
  Receive Date: 20070403
  Receipt Date: 20070329
  Transmission Date: 20071010
  Serious: Yes (Hospitalization, Disabling, Other)
  Sender: FDA-Public Use
  Company Number: JP-BRISTOL-MYERS SQUIBB COMPANY-13300405

PATIENT
  Age: 63 Year
  Sex: Male

DRUGS (10)
  1. TAXOL [Suspect]
     Indication: LUNG NEOPLASM MALIGNANT
     Route: 041
     Dates: start: 20051201, end: 20051208
  2. PARAPLATIN [Suspect]
     Indication: LUNG NEOPLASM MALIGNANT
     Route: 041
     Dates: start: 20051201, end: 20051208
  3. RADIOTHERAPY [Suspect]
     Indication: LUNG NEOPLASM MALIGNANT
     Dates: start: 20050926, end: 20051109
  4. BLOPRESS [Concomitant]
     Route: 048
     Dates: start: 20020101
  5. GASTER [Concomitant]
     Route: 048
     Dates: start: 20050906
  6. OXYCONTIN [Concomitant]
     Route: 048
     Dates: start: 20050924
  7. LOXONIN [Concomitant]
     Route: 048
     Dates: start: 20051209
  8. LENDORMIN [Concomitant]
     Route: 048
     Dates: start: 20051201
  9. RHYTHMY [Concomitant]
     Route: 048
     Dates: start: 20051201
  10. PAXIL [Concomitant]
     Route: 048
     Dates: start: 20051201

REACTIONS (1)
  - INTERSTITIAL LUNG DISEASE [None]
